FAERS Safety Report 6144875-7 (Version None)
Quarter: 2009Q2

REPORT INFORMATION
  Report Type: 
  Country: None (occurrence: None)
  Receive Date: 20090406
  Receipt Date: 20090326
  Transmission Date: 20091009
  Serious: Yes (Other)
  Sender: FDA-Public Use
  Company Number: PHHY2009JP12084

PATIENT
  Sex: Female

DRUGS (2)
  1. ZADITEN AL [Suspect]
     Indication: SEASONAL ALLERGY
     Dosage: 1 DF, UNK
     Route: 048
     Dates: start: 20090312, end: 20090312
  2. ZADITEN AL [Suspect]
     Dosage: 1 DF, UNK
     Route: 047
     Dates: start: 20090312, end: 20090312

REACTIONS (3)
  - DIZZINESS [None]
  - PALPITATIONS [None]
  - PRESYNCOPE [None]
